FAERS Safety Report 8215100-8 (Version None)
Quarter: 2012Q1

REPORT INFORMATION
  Report Type: 
  Country: None (occurrence: None)
  Receive Date: 20120316
  Receipt Date: 20120308
  Transmission Date: 20120608
  Serious: Yes (Hospitalization, Other)
  Sender: FDA-Public Use
  Company Number: PHHY2012GB008610

PATIENT
  Age: 52 Year
  Sex: Female

DRUGS (9)
  1. ALBUTEROL [Concomitant]
  2. CLOZAPINE [Interacting]
     Route: 048
     Dates: start: 20110204, end: 20111213
  3. LORAZEPAM [Concomitant]
     Dosage: 1 MG, BID
     Route: 048
  4. ACETAMINOPHEN [Concomitant]
     Dosage: 1 G, Q6H
     Route: 048
  5. VALPROATE SODIUM [Concomitant]
     Indication: BIPOLAR DISORDER
     Dosage: 300 MG, BID
     Route: 048
  6. HYDROXYCHLOROQUINE SULFATE [Concomitant]
     Indication: RHEUMATOID ARTHRITIS
     Dosage: 200 MG, QD
  7. FOLIC ACID [Concomitant]
     Indication: RHEUMATOID ARTHRITIS
     Dosage: 5 MG, QD
     Route: 048
  8. PAROXETINE HCL [Suspect]
  9. CLOZAPINE [Interacting]
     Route: 048
     Dates: start: 20120123

REACTIONS (8)
  - DRUG INTERACTION [None]
  - DYSARTHRIA [None]
  - DRUG LEVEL INCREASED [None]
  - ATONIC SEIZURES [None]
  - LYMPHOCYTE COUNT DECREASED [None]
  - NEUTROPENIA [None]
  - TOXICITY TO VARIOUS AGENTS [None]
  - DYSTONIA [None]
